FAERS Safety Report 10497015 (Version 2)
Quarter: 2015Q2

REPORT INFORMATION
  Report Type: Spontaneous
  Country: US (occurrence: US)
  Receive Date: 20141006
  Receipt Date: 20150511
  Transmission Date: 20150821
  Serious: Yes (Hospitalization, Other)
  Sender: FDA-Public Use
  Company Number: US-AMGEN-USASP2014075820

PATIENT
  Age: 59 Year
  Sex: Male

DRUGS (2)
  1. ENBREL [Suspect]
     Active Substance: ETANERCEPT
     Indication: PSORIATIC ARTHROPATHY
     Dosage: 50 MG, QWK
     Route: 065
     Dates: start: 20140620, end: 201409
  2. METHOTREXATE [Concomitant]
     Active Substance: METHOTREXATE
     Dosage: 2.5 MG, 8 PILLS A WEEK
     Dates: start: 2009

REACTIONS (10)
  - Eye swelling [Recovered/Resolved]
  - Autoimmune disorder [Not Recovered/Not Resolved]
  - Peripheral swelling [Recovered/Resolved]
  - Eye inflammation [Not Recovered/Not Resolved]
  - Sinus headache [Not Recovered/Not Resolved]
  - Myocardial infarction [Recovered/Resolved]
  - Pain [Recovered/Resolved]
  - Arterial occlusive disease [Recovered/Resolved]
  - Eye irritation [Not Recovered/Not Resolved]
  - Joint swelling [Recovered/Resolved]

NARRATIVE: CASE EVENT DATE: 201406
